FAERS Safety Report 6173230-9 (Version None)
Quarter: 2009Q2

REPORT INFORMATION
  Report Type: 
  Country: None (occurrence: None)
  Receive Date: 20090430
  Receipt Date: 20090421
  Transmission Date: 20091009
  Serious: Yes (Hospitalization)
  Sender: FDA-Public Use
  Company Number: JP-JNJCH-2009006134

PATIENT
  Sex: Female

DRUGS (15)
  1. CETIRIZINE HYDROCHLORIDE [Suspect]
     Indication: DERMATITIS ATOPIC
     Dosage: TEXT:10 MG
     Route: 048
     Dates: start: 20080502, end: 20081226
  2. CETIRIZINE HYDROCHLORIDE [Suspect]
     Indication: RASH
  3. BOSENTAN [Suspect]
     Indication: PULMONARY HYPERTENSION
     Dosage: TEXT:250 MG
     Route: 048
  4. EPOPROSTENOL [Concomitant]
     Indication: PULMONARY HYPERTENSION
     Dosage: TEXT:UNSPECIFIED
     Route: 042
  5. EPOPROSTENOL [Concomitant]
     Dosage: TEXT:UNSPECIFIED
     Route: 042
  6. EPOPROSTENOL [Concomitant]
     Dosage: TEXT:UNSPECIFIED
     Route: 042
  7. EPOPROSTENOL [Concomitant]
     Dosage: TEXT:UNSPECIFIED
     Route: 042
  8. EPOPROSTENOL [Concomitant]
     Dosage: TEXT:UNSPECIFIED
     Route: 042
  9. SPIRONOLACTONE [Concomitant]
     Indication: PULMONARY HYPERTENSION
     Dosage: TEXT:0.125 G
     Route: 048
  10. SPIRONOLACTONE [Concomitant]
     Indication: CARDIAC FAILURE
  11. DIGOXIN [Concomitant]
     Indication: ATRIAL FIBRILLATION
     Dosage: TEXT:UNSPECIFIED
     Route: 048
     Dates: start: 20080801, end: 20080805
  12. AZOSEMIDE [Concomitant]
     Indication: PULMONARY HYPERTENSION
     Dosage: TEXT:60 MG
     Route: 048
  13. AZOSEMIDE [Concomitant]
     Indication: RIGHT VENTRICULAR FAILURE
  14. SILDENAFIL CITRATE [Concomitant]
     Indication: PULMONARY HYPERTENSION
     Dosage: TEXT:60 MG
     Route: 048
  15. FEXOFENADINE [Concomitant]
     Indication: DERMATITIS ATOPIC
     Dosage: TEXT:120 MG
     Route: 048
     Dates: start: 20080502, end: 20081226

REACTIONS (3)
  - ATRIAL FIBRILLATION [None]
  - ATRIAL FLUTTER [None]
  - PLATELET COUNT DECREASED [None]
